FAERS Safety Report 9266119 (Version 3)
Quarter: 2013Q2

REPORT INFORMATION
  Report Type: Report from Study
  Country: VE (occurrence: VE)
  Receive Date: 20130502
  Receipt Date: 20130515
  Transmission Date: 20140414
  Serious: Yes (Death, Hospitalization, Other)
  Sender: FDA-Public Use
  Company Number: VE-ABBOTT-13P-178-1082092-00

PATIENT
  Age: 51 Year
  Sex: Female
  Weight: 43 kg

DRUGS (7)
  1. ZEMPLAR [Suspect]
     Indication: RENAL FAILURE CHRONIC
     Route: 042
     Dates: start: 20130402, end: 20130416
  2. ERITROPOYETINA [Concomitant]
     Indication: RENAL FAILURE CHRONIC
     Route: 042
     Dates: start: 200906
  3. ADALAT OROS [Concomitant]
     Indication: HYPERTENSION
     Route: 048
     Dates: start: 201107
  4. NACLODIN [Concomitant]
     Indication: HYPERTENSION
     Route: 048
     Dates: start: 201107
  5. THOSLO [Concomitant]
     Indication: HYPOCALCAEMIA
     Route: 048
     Dates: start: 201303
  6. FERRIN [Concomitant]
     Indication: ANAEMIA
     Route: 048
     Dates: start: 200906
  7. BENUTREX [Concomitant]
     Indication: ANAEMIA
     Route: 030
     Dates: start: 200812

REACTIONS (6)
  - Respiratory arrest [Fatal]
  - Spinal cord compression [Not Recovered/Not Resolved]
  - Intervertebral disc disorder [Not Recovered/Not Resolved]
  - Neck pain [Not Recovered/Not Resolved]
  - Paraesthesia [Not Recovered/Not Resolved]
  - Infection [Unknown]
